FAERS Safety Report 16836097 (Version 1)
Quarter: 2019Q3

REPORT INFORMATION
  Report Type: Spontaneous
  Country: DE (occurrence: DE)
  Receive Date: 20190921
  Receipt Date: 20190921
  Transmission Date: 20191005
  Serious: Yes (Life-Threatening, Hospitalization, Other)
  Sender: FDA-Public Use
  Company Number: DE-MACLEODS PHARMACEUTICALS US LTD-MAC2019022981

PATIENT

DRUGS (4)
  1. QUETIAPINE. [Suspect]
     Active Substance: QUETIAPINE
     Indication: SUICIDE ATTEMPT
     Dosage: UNKNOWN DOSES
     Route: 065
  2. TIOTROPIUM [Concomitant]
     Active Substance: TIOTROPIUM
     Indication: ASTHMA
     Dosage: 18 MICROGRAM, BID, RESPIRATORY (INHALATION)
  3. BUDESONIDE/FORMOTEROL [Concomitant]
     Active Substance: BUDESONIDE\FORMOTEROL
     Indication: ASTHMA
     Dosage: FIXED-DOSE COMBINATION, RESPIRATORY (INHALATION)
  4. IBUPROFEN. [Suspect]
     Active Substance: IBUPROFEN
     Indication: SUICIDE ATTEMPT
     Dosage: UNKNOWN DOSES
     Route: 065

REACTIONS (6)
  - Toxicity to various agents [Recovered/Resolved]
  - Asthma [Recovered/Resolved]
  - Respiratory acidosis [Recovered/Resolved]
  - Lung infiltration [Recovered/Resolved]
  - Status asthmaticus [Recovered/Resolved]
  - Hypercapnia [Recovered/Resolved]
